FAERS Safety Report 10762778 (Version 1)
Quarter: 2015Q1

REPORT INFORMATION
  Report Type: Spontaneous
  Country: SE (occurrence: SE)
  Receive Date: 20150204
  Receipt Date: 20150204
  Transmission Date: 20150721
  Serious: Yes (Hospitalization)
  Sender: FDA-Public Use
  Company Number: SE-BAXTER-2015BAX005284

PATIENT
  Sex: Female

DRUGS (4)
  1. HYQVIA [Suspect]
     Active Substance: HUMAN IMMUNOGLOBULIN G\HYALURONIDASE RECOMBINANT HUMAN
     Indication: BLOOD IMMUNOGLOBULIN A DECREASED
     Route: 065
     Dates: start: 201412
  2. GAMMANORM [Suspect]
     Active Substance: HUMAN IMMUNOGLOBULIN G
     Indication: BLOOD IMMUNOGLOBULIN A DECREASED
     Route: 065
     Dates: end: 201412
  3. HYQVIA [Suspect]
     Active Substance: HUMAN IMMUNOGLOBULIN G\HYALURONIDASE RECOMBINANT HUMAN
     Indication: BLOOD IMMUNOGLOBULIN G DECREASED
     Dosage: THIRD DOSE
     Route: 065
     Dates: start: 20150120
  4. GAMMANORM [Suspect]
     Active Substance: HUMAN IMMUNOGLOBULIN G
     Indication: BLOOD IMMUNOGLOBULIN G DECREASED

REACTIONS (2)
  - Haemolytic anaemia [Not Recovered/Not Resolved]
  - Non-Hodgkin^s lymphoma [Not Recovered/Not Resolved]

NARRATIVE: CASE EVENT DATE: 201501
